FAERS Safety Report 10342609 (Version 10)
Quarter: 2015Q4

REPORT INFORMATION
  Report Type: Report from Study
  Country: US (occurrence: US)
  Receive Date: 20140725
  Receipt Date: 20151002
  Transmission Date: 20160304
  Serious: Yes (Other)
  Sender: FDA-Public Use
  Company Number: US-SA-2014SA090586

PATIENT
  Age: 68 Year
  Sex: Female
  Weight: 82 kg

DRUGS (5)
  1. TRIAZOLAM. [Concomitant]
     Active Substance: TRIAZOLAM
     Indication: SLEEP DISORDER
     Dates: start: 2008
  2. AUBAGIO [Suspect]
     Active Substance: TERIFLUNOMIDE
     Indication: MULTIPLE SCLEROSIS
     Route: 048
     Dates: start: 20140620, end: 20141027
  3. AUBAGIO [Suspect]
     Active Substance: TERIFLUNOMIDE
     Indication: MULTIPLE SCLEROSIS
     Route: 048
  4. GABAPENTIN. [Concomitant]
     Active Substance: GABAPENTIN
     Indication: PAIN
     Dates: start: 2000
  5. MELOXICAM. [Concomitant]
     Active Substance: MELOXICAM
     Indication: BONE DISORDER
     Dates: start: 2008

REACTIONS (12)
  - Fine motor skill dysfunction [Unknown]
  - Hair texture abnormal [Unknown]
  - Diarrhoea [Unknown]
  - Hair growth abnormal [Unknown]
  - Arthralgia [Unknown]
  - Insomnia [Unknown]
  - Rheumatoid arthritis [Unknown]
  - Sensory loss [Unknown]
  - Contusion [Not Recovered/Not Resolved]
  - Motor dysfunction [Unknown]
  - Nodule [Unknown]
  - Tachyphrenia [Unknown]

NARRATIVE: CASE EVENT DATE: 2014
